FAERS Safety Report 8457702-X (Version None)
Quarter: 2012Q2

REPORT INFORMATION
  Report Type: 
  Country: None (occurrence: None)
  Receive Date: 20120618
  Receipt Date: 20120618
  Transmission Date: 20120825
  Serious: No
  Sender: FDA-Public Use
  Company Number: None

PATIENT
  Sex: Female
  Weight: 71.6683 kg

DRUGS (1)
  1. TOVIAZ [Suspect]
     Indication: HYPERTONIC BLADDER
     Dosage: 1 TABLET DAILY PO
     Route: 048
     Dates: start: 20120401, end: 20120607

REACTIONS (3)
  - DRUG INEFFECTIVE [None]
  - BURNING SENSATION [None]
  - JOINT SWELLING [None]
